FAERS Safety Report 5479247-1 (Version None)
Quarter: 2007Q4

REPORT INFORMATION
  Report Type: 
  Country: None (occurrence: None)
  Receive Date: 20071008
  Receipt Date: 20070925
  Transmission Date: 20080405
  Serious: Yes (Other)
  Sender: FDA-Public Use
  Company Number: US-JNJFOC-20070905274

PATIENT
  Age: 39 Year
  Sex: Female

DRUGS (3)
  1. TOPAMAX [Suspect]
     Indication: EPILEPSY
  2. ZYRTEC [Suspect]
     Indication: MULTIPLE ALLERGIES
  3. PAXIL [Suspect]
     Indication: DEPRESSION

REACTIONS (2)
  - ABORTION SPONTANEOUS [None]
  - DRUG EXPOSURE DURING PREGNANCY [None]
